FAERS Safety Report 4539904-8 (Version None)
Quarter: 2004Q4

REPORT INFORMATION
  Report Type: 
  Country: None (occurrence: None)
  Receive Date: 20041223
  Receipt Date: 20041210
  Transmission Date: 20050328
  Serious: Yes (Other)
  Sender: FDA-Public Use
  Company Number: 2004113940

PATIENT
  Age: 45 Year
  Sex: Female

DRUGS (6)
  1. SPIRONOLACTONE [Suspect]
     Indication: HYPOKALAEMIA
     Dosage: 25 MG, ORAL;  50 MG, ORAL
     Route: 048
     Dates: start: 20040601
  2. SPIRONOLACTONE [Suspect]
     Indication: HYPOKALAEMIA
     Dosage: 25 MG, ORAL;  50 MG, ORAL
     Route: 048
     Dates: start: 20040801
  3. VALSARTAN (VALSARTAN) [Concomitant]
  4. DILTIAZEM HYDROCHLORIDE [Concomitant]
  5. FAMOTIDINE [Concomitant]
  6. POTASSIUM CHLORIDE [Concomitant]

REACTIONS (2)
  - ISCHAEMIC CARDIOMYOPATHY [None]
  - LIP DISCOLOURATION [None]
